FAERS Safety Report 7966976-0 (Version None)
Quarter: 2011Q4

REPORT INFORMATION
  Report Type: 
  Country: None (occurrence: None)
  Receive Date: 20111209
  Receipt Date: 20111128
  Transmission Date: 20120403
  Serious: Yes (Death, Hospitalization)
  Sender: FDA-Public Use
  Company Number: CA-JNJFOC-20111112749

PATIENT
  Sex: Female

DRUGS (9)
  1. ARAVA [Concomitant]
     Route: 065
  2. ALL OTHER THERAPEUTICS [Concomitant]
     Route: 065
  3. ALL OTHER THERAPEUTICS [Concomitant]
     Route: 065
  4. GLYBURIDE [Concomitant]
     Route: 048
  5. REMICADE [Suspect]
     Indication: RHEUMATOID ARTHRITIS
     Dosage: 1, 2
     Route: 042
     Dates: start: 20110218, end: 20110304
  6. METHOTREXATE [Concomitant]
     Route: 048
  7. PREDNISONE TAB [Concomitant]
     Route: 048
  8. SULFASALAZINE [Concomitant]
     Route: 048
  9. METFORMIN HCL [Concomitant]
     Route: 065

REACTIONS (4)
  - RENAL FAILURE [None]
  - SHOCK [None]
  - HEPATIC FUNCTION ABNORMAL [None]
  - DISSEMINATED TUBERCULOSIS [None]
